FAERS Safety Report 12482086 (Version 3)
Quarter: 2016Q3

REPORT INFORMATION
  Report Type: Spontaneous
  Country: JP (occurrence: JP)
  Receive Date: 20160620
  Receipt Date: 20160719
  Transmission Date: 20161109
  Serious: Yes (Life-Threatening, Hospitalization, Other)
  Sender: FDA-Public Use
  Company Number: JP-BAYER-2016-114175

PATIENT
  Age: 84 Year
  Sex: Male
  Weight: 54 kg

DRUGS (5)
  1. BAYASPIRIN [Suspect]
     Active Substance: ASPIRIN
     Indication: ACUTE MYOCARDIAL INFARCTION
     Dosage: 100 MG, QD
     Route: 048
     Dates: start: 20150629, end: 2015
  2. PRASUGREL [Suspect]
     Active Substance: PRASUGREL
     Dosage: 3.75 UNK, UNK
     Route: 048
     Dates: start: 2015
  3. BAYASPIRIN [Suspect]
     Active Substance: ASPIRIN
     Indication: ACUTE MYOCARDIAL INFARCTION
     Dosage: 100 MG, UNK
     Dates: start: 2015
  4. PLAVIX [Suspect]
     Active Substance: CLOPIDOGREL BISULFATE
     Dosage: UNK
     Route: 048
     Dates: start: 20150629
  5. PRASUGREL [Suspect]
     Active Substance: PRASUGREL
     Dosage: DAILY DOSE 3.75 MG
     Route: 048
     Dates: start: 20150629, end: 2015

REACTIONS (8)
  - Cholecystitis [Recovered/Resolved]
  - Pneumonia [None]
  - Haemobilia [Recovered/Resolved]
  - Haematoma [None]
  - Drug administration error [None]
  - Haemorrhagic ascites [None]
  - Labelled drug-drug interaction medication error [Recovered/Resolved]
  - Cholecystitis infective [None]

NARRATIVE: CASE EVENT DATE: 2015
